FAERS Safety Report 18101159 (Version 1)
Quarter: 2020Q3

REPORT INFORMATION
  Report Type: Spontaneous
  Country: DE (occurrence: DE)
  Receive Date: 20200801
  Receipt Date: 20200801
  Transmission Date: 20201103
  Serious: Yes (Hospitalization, Other)
  Sender: FDA-Public Use
  Company Number: DE-AUROBINDO-AUR-APL-2020-037339

PATIENT
  Age: 15 Year
  Sex: Male
  Weight: 83 kg

DRUGS (4)
  1. FYCOMPA [Interacting]
     Active Substance: PERAMPANEL
     Indication: PETIT MAL EPILEPSY
     Dosage: 2 MILLIGRAM, ONCE A DAY
     Route: 048
     Dates: start: 20200317, end: 20200406
  2. FYCOMPA [Interacting]
     Active Substance: PERAMPANEL
     Dosage: 2 MILLIGRAM, ONCE A DAY
     Route: 048
     Dates: start: 20200416, end: 202004
  3. LAMOTRIGINE. [Suspect]
     Active Substance: LAMOTRIGINE
     Indication: PETIT MAL EPILEPSY
     Dosage: 225 MILLIGRAM
     Route: 065
     Dates: start: 2019
  4. FYCOMPA [Interacting]
     Active Substance: PERAMPANEL
     Dosage: 4 MILLIGRAM, ONCE A DAY
     Route: 048
     Dates: start: 20200407, end: 20200415

REACTIONS (5)
  - Confusional state [Unknown]
  - Petit mal epilepsy [Unknown]
  - Disorientation [Unknown]
  - Drug interaction [Unknown]
  - Drug withdrawal convulsions [Unknown]

NARRATIVE: CASE EVENT DATE: 2020
